FAERS Safety Report 5489785-3 (Version None)
Quarter: 2007Q4

REPORT INFORMATION
  Report Type: 
  Country: None (occurrence: None)
  Receive Date: 20071018
  Receipt Date: 20071011
  Transmission Date: 20080405
  Serious: Yes (Other)
  Sender: FDA-Public Use
  Company Number: BR-ALLERGAN-0711316US

PATIENT
  Sex: Male

DRUGS (3)
  1. RELESTAT [Suspect]
     Indication: EYE ALLERGY
     Dosage: 1 GTT, BID
     Route: 047
     Dates: start: 20070924, end: 20071009
  2. PREDISIN [Concomitant]
     Indication: ASTHMA
     Dosage: 6 ML, QD
     Route: 048
  3. SALBUTAMOL [Concomitant]
     Indication: ASTHMA
     Dosage: 5 ML, BID
     Route: 048

REACTIONS (2)
  - ASTHMATIC CRISIS [None]
  - EYE DISCHARGE [None]
